FAERS Safety Report 8268852-5 (Version None)
Quarter: 2012Q2

REPORT INFORMATION
  Report Type: 
  Country: None (occurrence: None)
  Receive Date: 20120409
  Receipt Date: 20120409
  Transmission Date: 20120825
  Serious: Yes (Life-Threatening, Hospitalization)
  Sender: FDA-Public Use
  Company Number: None

PATIENT
  Age: 36 Year
  Sex: Female
  Weight: 80.739 kg

DRUGS (2)
  1. LO LOESTRIN FE [Suspect]
     Indication: HORMONE LEVEL ABNORMAL
     Dosage: ONE PILL
     Route: 048
     Dates: start: 20120301, end: 20120301
  2. LO LOESTRIN FE [Concomitant]

REACTIONS (2)
  - DEEP VEIN THROMBOSIS [None]
  - PULMONARY EMBOLISM [None]
